FAERS Safety Report 9527065 (Version 1)
Quarter: 2013Q3

REPORT INFORMATION
  Report Type: Report from Study
  Country: US (occurrence: US)
  Receive Date: 20130916
  Receipt Date: 20130916
  Transmission Date: 20140515
  Serious: Yes (Death, Disabling)
  Sender: FDA-Public Use
  Company Number: US-US-EMD SERONO, INC.-7237168

PATIENT
  Age: 52 Year
  Sex: Female

DRUGS (2)
  1. REBIF [Suspect]
     Indication: MULTIPLE SCLEROSIS
     Route: 058
     Dates: start: 20070120, end: 20071101
  2. REBIF [Suspect]
     Route: 058
     Dates: start: 20080407, end: 201302

REACTIONS (3)
  - Embolic stroke [Fatal]
  - Embolic stroke [Fatal]
  - Muscular weakness [Unknown]
